FAERS Safety Report 15113196 (Version 1)
Quarter: 2018Q3

REPORT INFORMATION
  Report Type: Report from Study
  Country: BR (occurrence: BR)
  Receive Date: 20180706
  Receipt Date: 20180706
  Transmission Date: 20181010
  Serious: Yes (Other)
  Sender: FDA-Public Use
  Company Number: BR-ROCHE-2144547

PATIENT
  Age: 57 Year
  Sex: Female
  Weight: 72 kg

DRUGS (10)
  1. ACLASTA [Concomitant]
     Active Substance: ZOLEDRONIC ACID
  2. ADDERA [Concomitant]
     Active Substance: CHOLECALCIFEROL
     Route: 065
  3. MABTHERA [Suspect]
     Active Substance: RITUXIMAB
     Indication: RHEUMATOID ARTHRITIS
     Route: 042
     Dates: start: 20090701
  4. ACERTIL [Concomitant]
     Active Substance: PERINDOPRIL ARGININE
     Indication: AFFECTIVE DISORDER
     Dosage: 1 TABLET AT DAY AND 1 AT NIGH
     Route: 065
  5. RIVOTRIL [Concomitant]
     Active Substance: CLONAZEPAM
     Route: 065
  6. MABTHERA [Suspect]
     Active Substance: RITUXIMAB
     Dosage: LATEST INFUSION WAS ON 05/JUL/2017?LATEST INFUSION WAS ON 20/JUN/2018
     Route: 042
  7. GABAPENTIN. [Concomitant]
     Active Substance: GABAPENTIN
     Route: 065
  8. VITAMIN D3 [Concomitant]
     Active Substance: CHOLECALCIFEROL
  9. PANTOZOL (BRAZIL) [Concomitant]
     Indication: GASTRIC DISORDER
     Route: 065
  10. OSCAL D [Concomitant]
     Active Substance: CALCIUM CARBONATE\CHOLECALCIFEROL

REACTIONS (10)
  - Chills [Recovering/Resolving]
  - Pruritus [Recovering/Resolving]
  - Hand deformity [Recovering/Resolving]
  - Sneezing [Recovered/Resolved]
  - Diabetes mellitus [Not Recovered/Not Resolved]
  - Blood cholesterol abnormal [Unknown]
  - Headache [Recovering/Resolving]
  - Foot deformity [Recovering/Resolving]
  - Malaise [Recovering/Resolving]
  - Nausea [Recovering/Resolving]

NARRATIVE: CASE EVENT DATE: 20180620
